FAERS Safety Report 8958613 (Version 1)
Quarter: 2012Q4

REPORT INFORMATION
  Report Type: Spontaneous
  Country: US (occurrence: None)
  Receive Date: 20121206
  Receipt Date: 20121206
  Transmission Date: 20130627
  Serious: Yes (Other)
  Sender: FDA-Public Use
  Company Number: None

PATIENT
  Age: 34 Year
  Sex: Female
  Weight: 52.16 kg

DRUGS (2)
  1. SEASONIQUE [Suspect]
     Indication: BIRTH CONTROL
     Dosage: 1 daily po
     Route: 048
     Dates: start: 20110501, end: 20120828
  2. SEASONIQUE [Suspect]
     Indication: MIGRAINE
     Dosage: 1 daily po
     Route: 048
     Dates: start: 20110501, end: 20120828

REACTIONS (5)
  - Chest discomfort [None]
  - Chest discomfort [None]
  - Palpitations [None]
  - Dyspnoea [None]
  - Myocardial infarction [None]
